FAERS Safety Report 7503158-0 (Version None)
Quarter: 2011Q2

REPORT INFORMATION
  Report Type: 
  Country: None (occurrence: None)
  Receive Date: 20110525
  Receipt Date: 20101029
  Transmission Date: 20111010
  Serious: No
  Sender: FDA-Public Use
  Company Number: US-NOVEN-ALL1-2010-05636

PATIENT
  Sex: Female
  Weight: 84.354 kg

DRUGS (6)
  1. ZOLOFT [Concomitant]
     Dosage: UNK MG, 1X/DAY:QD
     Route: 048
  2. MELATONIN [Concomitant]
     Dosage: UNK MG, 1X/DAY:QD
     Route: 048
  3. LACTAID [Concomitant]
     Dosage: UNK MG, UNK
     Route: 048
  4. DAYTRANA [Suspect]
     Dosage: 30 MG, 1X/DAY:QD
     Route: 062
     Dates: start: 20100801
  5. SINGULAIR [Concomitant]
     Dosage: UNK MG, UNK
     Route: 048
  6. ZYRTEC [Concomitant]
     Dosage: UNK MG, 1X/DAY:QD
     Route: 048

REACTIONS (3)
  - NO ADVERSE EVENT [None]
  - PRODUCT QUALITY ISSUE [None]
  - INCORRECT STORAGE OF DRUG [None]
